FAERS Safety Report 12183335 (Version 1)
Quarter: 2016Q1

REPORT INFORMATION
  Report Type: Spontaneous
  Country: US (occurrence: US)
  Receive Date: 20160316
  Receipt Date: 20160316
  Transmission Date: 20160526
  Serious: No
  Sender: FDA-Public Use
  Company Number: US-AUROBINDO-AUR-APL-2015-01032

PATIENT
  Sex: Female
  Weight: 113.38 kg

DRUGS (1)
  1. GABAPENTIN CAPSULES 300 MG [Suspect]
     Active Substance: GABAPENTIN
     Indication: PAIN IN EXTREMITY
     Dosage: 300 MG, UNK
     Route: 048
     Dates: start: 201209

REACTIONS (3)
  - Product quality issue [Recovering/Resolving]
  - Pain in extremity [Recovering/Resolving]
  - Drug ineffective [Recovering/Resolving]
